FAERS Safety Report 6892599-0 (Version None)
Quarter: 2010Q3

REPORT INFORMATION
  Report Type: 
  Country: None (occurrence: None)
  Receive Date: 20100731
  Receipt Date: 20080709
  Transmission Date: 20110219
  Serious: Yes (Other)
  Sender: FDA-Public Use
  Company Number: US-PFIZER INC-2008043218

PATIENT
  Sex: Male
  Weight: 86.2 kg

DRUGS (6)
  1. CAVERJECT [Suspect]
     Indication: ERECTILE DYSFUNCTION
     Dates: start: 20050101, end: 20060101
  2. CAVERJECT [Suspect]
  3. TRIMOX [Suspect]
     Indication: ERECTILE DYSFUNCTION
  4. KLONOPIN [Concomitant]
  5. DILTIAZEM [Concomitant]
  6. CRESTOR [Concomitant]

REACTIONS (2)
  - ERECTION INCREASED [None]
  - MEDICATION ERROR [None]
